FAERS Safety Report 19222488 (Version 2)
Quarter: 2021Q3

REPORT INFORMATION
  Report Type: Spontaneous
  Country: FR (occurrence: FR)
  Receive Date: 20210506
  Receipt Date: 20210820
  Transmission Date: 20211014
  Serious: No
  Sender: FDA-Public Use
  Company Number: FR-SA-2021SA147472

PATIENT
  Age: 30 Year
  Sex: Female

DRUGS (1)
  1. AUBAGIO [Suspect]
     Active Substance: TERIFLUNOMIDE
     Dosage: 14 MG
     Dates: start: 202011

REACTIONS (2)
  - Weight decreased [Unknown]
  - Decreased appetite [Unknown]
